FAERS Safety Report 13077893 (Version 3)
Quarter: 2017Q1

REPORT INFORMATION
  Report Type: Report from Study
  Country: FR (occurrence: FR)
  Receive Date: 20170102
  Receipt Date: 20170106
  Transmission Date: 20170428
  Serious: Yes (Hospitalization, Other)
  Sender: FDA-Public Use
  Company Number: FR-BRISTOL-MYERS SQUIBB COMPANY-BMS-2016-109736

PATIENT
  Age: 36 Year
  Sex: Female
  Weight: 68 kg

DRUGS (5)
  1. PARIET [Concomitant]
     Active Substance: RABEPRAZOLE SODIUM
     Indication: GASTROOESOPHAGEAL REFLUX DISEASE
     Dosage: 1 MG, QD
     Route: 065
     Dates: start: 20110517
  2. ADVAGRAF [Concomitant]
     Active Substance: TACROLIMUS
     Indication: IMMUNOSUPPRESSANT DRUG THERAPY
     Dosage: 3 MG, QD
     Route: 065
     Dates: start: 20110517
  3. ENTECAVIR. [Suspect]
     Active Substance: ENTECAVIR
     Indication: HEPATITIS B
     Dosage: 0.5 MG, QD
     Route: 065
     Dates: start: 2009
  4. CORTANCYL [Concomitant]
     Active Substance: PREDNISONE
     Indication: IMMUNOSUPPRESSANT DRUG THERAPY
     Dosage: 1 MG, QD
     Route: 065
     Dates: start: 20110517
  5. MAGNE B6                           /00869101/ [Concomitant]
     Indication: IRON DEFICIENCY
     Dosage: 2 TAB, BID
     Route: 065

REACTIONS (12)
  - Lung infection [Recovering/Resolving]
  - Hepatocellular injury [Unknown]
  - Liver transplant [Unknown]
  - Nausea [Unknown]
  - Hepatectomy [Unknown]
  - Pyrexia [Unknown]
  - Portal vein thrombosis [Unknown]
  - Abdominal pain [Unknown]
  - Therapeutic embolisation [Unknown]
  - Cholestasis [Unknown]
  - Diarrhoea [Recovered/Resolved]
  - Transaminases increased [Unknown]

NARRATIVE: CASE EVENT DATE: 20141009
